FAERS Safety Report 13025944 (Version 1)
Quarter: 2016Q4

REPORT INFORMATION
  Report Type: Spontaneous
  Country: US (occurrence: US)
  Receive Date: 20161213
  Receipt Date: 20161213
  Transmission Date: 20170207
  Serious: Yes (Disabling)
  Sender: FDA-Public Use
  Company Number: None

PATIENT
  Age: 56 Year
  Sex: Female
  Weight: 46.35 kg

DRUGS (4)
  1. HEADACHE POWERS [Concomitant]
  2. ROCEPHIN [Suspect]
     Active Substance: CEFTRIAXONE SODIUM
     Indication: MALAISE
     Route: 042
     Dates: start: 20161122, end: 20161122
  3. ROCEPHIN [Suspect]
     Active Substance: CEFTRIAXONE SODIUM
     Indication: ASTHENIA
     Route: 042
     Dates: start: 20161122, end: 20161122
  4. ROCEPHIN [Suspect]
     Active Substance: CEFTRIAXONE SODIUM
     Indication: DEHYDRATION
     Route: 042
     Dates: start: 20161122, end: 20161122

REACTIONS (2)
  - Arthralgia [None]
  - Rash generalised [None]

NARRATIVE: CASE EVENT DATE: 20161122
